FAERS Safety Report 25049764 (Version 1)
Quarter: 2025Q1

REPORT INFORMATION
  Report Type: Spontaneous
  Country: FR (occurrence: FR)
  Receive Date: 20250307
  Receipt Date: 20250307
  Transmission Date: 20250408
  Serious: Yes (Hospitalization)
  Sender: RANBAXY
  Company Number: FR-AFSSAPS-TS2025000035

PATIENT
  Age: 48 Year
  Sex: Female
  Weight: 46.7 kg

DRUGS (3)
  1. ERTAPENEM [Suspect]
     Active Substance: ERTAPENEM
     Indication: Bacteraemia
     Dosage: 1 GRAM, QD
     Route: 040
     Dates: start: 20241002, end: 20241027
  2. DAPTOMYCIN [Suspect]
     Active Substance: DAPTOMYCIN
     Indication: Bacteraemia
     Dosage: 500 MILLIGRAM, QD
     Route: 040
     Dates: start: 20241006, end: 20241024
  3. RIFAMPIN [Suspect]
     Active Substance: RIFAMPIN
     Indication: Bacteraemia
     Dosage: 600 MILLIGRAM, BID
     Route: 040
     Dates: start: 20241015, end: 20241027

REACTIONS (1)
  - Encephalopathy [Recovering/Resolving]

NARRATIVE: CASE EVENT DATE: 20241024
